FAERS Safety Report 22052855 (Version 1)
Quarter: 2023Q1

REPORT INFORMATION
  Report Type: Spontaneous
  Country: BR (occurrence: BR)
  Receive Date: 20230302
  Receipt Date: 20230302
  Transmission Date: 20230417
  Serious: Yes (Other)
  Sender: FDA-Public Use
  Company Number: BR-UCBSA-2023010530

PATIENT
  Age: 38 Year
  Sex: Female

DRUGS (3)
  1. KEPPRA XR [Suspect]
     Active Substance: LEVETIRACETAM
     Indication: Epilepsy
     Dosage: 1250 MILLIGRAM, 2X/DAY (BID)
     Route: 048
     Dates: start: 20210202
  2. KEPPRA XR [Suspect]
     Active Substance: LEVETIRACETAM
     Dosage: 750MG (1, ONE IN THE MORNING AND 1 AT NIGHT BEFORE GOING TO BED) ALSO TAKES 250MG (2 TABLETS IN THE
     Route: 048
  3. CLOBAZAM [Concomitant]
     Active Substance: CLOBAZAM
     Indication: Product used for unknown indication
     Dosage: UNK

REACTIONS (2)
  - Seizure [Recovered/Resolved]
  - Product dose omission issue [Unknown]

NARRATIVE: CASE EVENT DATE: 20221217
